FAERS Safety Report 13401912 (Version 2)
Quarter: 2017Q2

REPORT INFORMATION
  Report Type: Report from Study
  Country: JP (occurrence: JP)
  Receive Date: 20170404
  Receipt Date: 20170522
  Transmission Date: 20170830
  Serious: Yes (Other)
  Sender: FDA-Public Use
  Company Number: JP-JNJFOC-20161128207

PATIENT
  Age: 1 Year
  Sex: Female
  Weight: 14 kg

DRUGS (10)
  1. TOPINA [Suspect]
     Active Substance: TOPIRAMATE
     Indication: PARTIAL SEIZURES
     Route: 048
     Dates: start: 20090820
  2. TOPINA [Suspect]
     Active Substance: TOPIRAMATE
     Indication: PARTIAL SEIZURES
     Route: 048
     Dates: start: 20140723, end: 20150519
  3. LAMICTAL [Concomitant]
     Active Substance: LAMOTRIGINE
     Indication: PARTIAL SEIZURES
     Route: 048
     Dates: start: 20151014
  4. MYSTAN [Concomitant]
     Active Substance: CLOBAZAM
     Indication: PARTIAL SEIZURES
     Route: 065
     Dates: start: 20150520, end: 20150728
  5. POTASSIUM BROMIDE [Concomitant]
     Active Substance: POTASSIUM BROMIDE
     Indication: PARTIAL SEIZURES
     Route: 048
     Dates: start: 20150520
  6. MYSTAN [Concomitant]
     Active Substance: CLOBAZAM
     Indication: PARTIAL SEIZURES
     Route: 065
     Dates: start: 20150422, end: 20150519
  7. LAMICTAL [Concomitant]
     Active Substance: LAMOTRIGINE
     Indication: PARTIAL SEIZURES
     Route: 048
     Dates: start: 20150422, end: 20151013
  8. MYSTAN [Concomitant]
     Active Substance: CLOBAZAM
     Indication: PARTIAL SEIZURES
     Route: 065
     Dates: start: 20150729, end: 20150901
  9. POTASSIUM BROMIDE [Concomitant]
     Active Substance: POTASSIUM BROMIDE
     Indication: PARTIAL SEIZURES
     Route: 048
     Dates: start: 20150422, end: 20150519
  10. MYSTAN [Concomitant]
     Active Substance: CLOBAZAM
     Indication: PARTIAL SEIZURES
     Route: 065
     Dates: start: 20150902

REACTIONS (4)
  - Off label use [Unknown]
  - Weight gain poor [Recovering/Resolving]
  - Decreased appetite [Recovering/Resolving]
  - Body height below normal [Recovering/Resolving]

NARRATIVE: CASE EVENT DATE: 20090820
